FAERS Safety Report 6594688-7 (Version None)
Quarter: 2010Q1

REPORT INFORMATION
  Report Type: 
  Country: None (occurrence: None)
  Receive Date: 20100222
  Receipt Date: 20100122
  Transmission Date: 20100710
  Serious: No
  Sender: FDA-Public Use
  Company Number: US-BAYER-201012275NA

PATIENT
  Sex: Male

DRUGS (2)
  1. SOTALOL [Suspect]
     Indication: DRUG USE FOR UNKNOWN INDICATION
  2. AMIODARONE HCL [Concomitant]

REACTIONS (1)
  - ADVERSE EVENT [None]
